FAERS Safety Report 21473269 (Version 1)
Quarter: 2022Q4

REPORT INFORMATION
  Report Type: Other
  Country: DK (occurrence: DK)
  Receive Date: 20221018
  Receipt Date: 20221018
  Transmission Date: 20230113
  Serious: Yes (Hospitalization)
  Sender: FDA-Public Use
  Company Number: DK-PHARMAAND-2022PHR00248

PATIENT
  Age: 60 Year
  Sex: Male

DRUGS (1)
  1. PEGASYS [Suspect]
     Active Substance: PEGINTERFERON ALFA-2A
     Indication: Cutaneous T-cell lymphoma
     Dosage: 180 ?G, 1X/WEEK
     Route: 058
     Dates: start: 20190317, end: 20200323

REACTIONS (9)
  - Haemorrhagic disorder [Recovered/Resolved]
  - Haemorrhagic diathesis [Recovered/Resolved]
  - Subcutaneous haematoma [Recovered/Resolved]
  - Muscle haemorrhage [Recovered/Resolved]
  - Blood urine present [Recovered/Resolved]
  - Fatigue [Recovered/Resolved]
  - Influenza like illness [Recovered/Resolved]
  - Pyrexia [Recovered/Resolved]
  - Off label use [Unknown]

NARRATIVE: CASE EVENT DATE: 20190101
